FAERS Safety Report 4320351-9 (Version None)
Quarter: 2004Q1

REPORT INFORMATION
  Report Type: 
  Country: None (occurrence: None)
  Receive Date: 20040317
  Receipt Date: 20040305
  Transmission Date: 20041129
  Serious: No
  Sender: FDA-Public Use
  Company Number: 04P-028-0251868-00

PATIENT
  Sex: Female

DRUGS (1)
  1. SEVORANE (ULTANE LIQUID) [Suspect]
     Indication: ANAESTHESIA
     Route: 055

REACTIONS (4)
  - AIRWAY COMPLICATION OF ANAESTHESIA [None]
  - BRONCHOSPASM [None]
  - INCREASED BRONCHIAL SECRETION [None]
  - PULMONARY OEDEMA [None]
